FAERS Safety Report 4840618-5 (Version None)
Quarter: 2005Q4

REPORT INFORMATION
  Report Type: 
  Country: None (occurrence: None)
  Receive Date: 20051129
  Receipt Date: 20051129
  Transmission Date: 20060501
  Serious: Yes (Other)
  Sender: FDA-Public Use
  Company Number: None

PATIENT
  Age: 86 Year
  Sex: Female
  Weight: 58.514 kg

DRUGS (1)
  1. ARICEPT [Suspect]
     Indication: DRUG DISPENSING ERROR

REACTIONS (5)
  - DRUG DISPENSING ERROR [None]
  - MEDICATION ERROR [None]
  - NAUSEA [None]
  - PALPITATIONS [None]
  - WRONG DRUG ADMINISTERED [None]
